FAERS Safety Report 17566659 (Version 1)
Quarter: 2020Q1

REPORT INFORMATION
  Report Type: Spontaneous
  Country: SE (occurrence: SE)
  Receive Date: 20200320
  Receipt Date: 20200320
  Transmission Date: 20200409
  Serious: Yes (Hospitalization)
  Sender: FDA-Public Use
  Company Number: SE-PFIZER INC-2020119955

PATIENT
  Age: 50 Year
  Sex: Male

DRUGS (2)
  1. XANOR [Suspect]
     Active Substance: ALPRAZOLAM
     Dosage: APPROXIMATELY 15 PCS
     Dates: start: 20200214, end: 20200214
  2. AMFETAMINE [Suspect]
     Active Substance: AMPHETAMINE
     Dosage: ONE AMFETAMINE SYRINGE
     Dates: start: 20200214, end: 20200214

REACTIONS (6)
  - Overdose [Recovering/Resolving]
  - Toxicity to various agents [Recovering/Resolving]
  - Sinus tachycardia [Recovering/Resolving]
  - Respiratory acidosis [Recovering/Resolving]
  - Depressed level of consciousness [Recovering/Resolving]
  - Oxygen saturation decreased [Recovering/Resolving]

NARRATIVE: CASE EVENT DATE: 20200214
